FAERS Safety Report 5102868-2 (Version None)
Quarter: 2006Q3

REPORT INFORMATION
  Report Type: 
  Country: None (occurrence: None)
  Receive Date: 20060908
  Receipt Date: 20060516
  Transmission Date: 20061208
  Serious: Yes (Hospitalization)
  Sender: FDA-Public Use
  Company Number: 060083

PATIENT
  Age: 79 Year
  Sex: Male
  Weight: 78.4723 kg

DRUGS (4)
  1. HALFLYTELY AND BISCADOYL TABLETS BOWEL PREP KIT [Suspect]
     Indication: COLONOSCOPY
     Dosage: 20 MG, 1X, PO; ^ 6 WEEKS AGO ^
     Route: 048
  2. HYDROCHLOROTHIAZIDE [Concomitant]
  3. SYNTHROID [Concomitant]
  4. LISINOPRIL [Concomitant]

REACTIONS (10)
  - ABDOMINAL PAIN [None]
  - COLONIC OBSTRUCTION [None]
  - DYSPNOEA [None]
  - FEELING HOT [None]
  - FLUSHING [None]
  - GASTROINTESTINAL INFECTION [None]
  - INCOHERENT [None]
  - INTESTINAL FUNCTIONAL DISORDER [None]
  - MUSCLE SPASMS [None]
  - RECTAL HAEMORRHAGE [None]
